FAERS Safety Report 6509331-2 (Version None)
Quarter: 2009Q4

REPORT INFORMATION
  Report Type: 
  Country: None (occurrence: None)
  Receive Date: 20091222
  Receipt Date: 20091214
  Transmission Date: 20100525
  Serious: Yes (Other)
  Sender: FDA-Public Use
  Company Number: US-RB-026970-09

PATIENT
  Sex: Male

DRUGS (1)
  1. MUCINEX [Suspect]
     Dosage: TOOK 1 TABLET EVERY 12 HOURS FOR THE PAST 36 HOURS
     Route: 048
     Dates: start: 20091212

REACTIONS (2)
  - BLOOD PRESSURE FLUCTUATION [None]
  - HYPERTENSION [None]
